FAERS Safety Report 7156245-3 (Version None)
Quarter: 2010Q4

REPORT INFORMATION
  Report Type: 
  Country: None (occurrence: None)
  Receive Date: 20101214
  Receipt Date: 20101206
  Transmission Date: 20110411
  Serious: Yes (Death, Other)
  Sender: FDA-Public Use
  Company Number: FR-ELI_LILLY_AND_COMPANY-FR201012001658

PATIENT

DRUGS (1)
  1. GEMCITABINE HCL [Suspect]
     Dosage: 1 G/M2, 1/W, 1 W REST, THEN WEEKLY X 3/4
     Route: 042

REACTIONS (1)
  - DEATH [None]
